FAERS Safety Report 8342002-9 (Version None)
Quarter: 2012Q1

REPORT INFORMATION
  Report Type: 
  Country: None (occurrence: None)
  Receive Date: 20120330
  Receipt Date: 20111019
  Transmission Date: 20120608
  Serious: Yes (Hospitalization)
  Sender: FDA-Public Use
  Company Number: PHEH2011US07405

PATIENT
  Age: 82 Year
  Sex: Female

DRUGS (6)
  1. EXELON [Suspect]
     Dosage: UNK UKN, BID, ORAL
     Route: 048
     Dates: start: 20110930, end: 20111010
  2. SYNTHROID [Concomitant]
  3. ZOCOR [Concomitant]
  4. NAMENDA [Concomitant]
  5. ATENOLOL [Concomitant]
  6. AGGRENOX [Concomitant]

REACTIONS (5)
  - DEHYDRATION [None]
  - DIARRHOEA [None]
  - NAUSEA [None]
  - ABDOMINAL DISCOMFORT [None]
  - VOMITING [None]
